FAERS Safety Report 9120417 (Version 1)
Quarter: 2013Q1

REPORT INFORMATION
  Report Type: Spontaneous
  Country: US (occurrence: US)
  Receive Date: 20130226
  Receipt Date: 20130226
  Transmission Date: 20140127
  Serious: Yes (Life-Threatening, Disabling)
  Sender: FDA-Public Use
  Company Number: US-009507513-1302USA010709

PATIENT
  Sex: Male

DRUGS (1)
  1. CORICIDIN HBP COUGH AND COLD [Suspect]
     Indication: PRODUCT USED FOR UNKNOWN INDICATION
     Dosage: 90 DF, UNKNOWN
     Route: 048
     Dates: start: 2011

REACTIONS (3)
  - Apparent death [Recovered/Resolved with Sequelae]
  - Mental retardation [Not Recovered/Not Resolved]
  - Overdose [Unknown]
